FAERS Safety Report 7671414-1 (Version None)
Quarter: 2011Q3

REPORT INFORMATION
  Report Type: 
  Country: None (occurrence: None)
  Receive Date: 20110809
  Receipt Date: 20110726
  Transmission Date: 20111222
  Serious: Yes (Hospitalization, Other)
  Sender: FDA-Public Use
  Company Number: CA-ELI_LILLY_AND_COMPANY-CA201107006934

PATIENT
  Sex: Female

DRUGS (27)
  1. PROCYCLIDINE HYDROCHLORIDE 2MG TAB [Concomitant]
  2. WELLBUTRIN [Concomitant]
  3. LUVOX [Concomitant]
  4. ZYPREXA [Suspect]
     Dosage: 5 MG, QD
  5. NEURONTIN [Concomitant]
  6. TEGRETOL [Concomitant]
  7. LECTOPAM TAB [Concomitant]
  8. CELEXA [Concomitant]
  9. RISPERDAL [Concomitant]
  10. SEROQUEL [Concomitant]
  11. BEXTRA [Concomitant]
  12. EFFEXOR [Concomitant]
  13. NOVOTRIPTYN [Concomitant]
  14. VALPROATE SODIUM [Concomitant]
  15. MIRAPEX [Concomitant]
  16. LAMICTAL [Concomitant]
  17. ZYPREXA [Suspect]
     Dosage: 10 MG, UNKNOWN
  18. STELAZINE [Concomitant]
  19. ATIVAN [Concomitant]
  20. ZOLOFT [Concomitant]
  21. REMERON [Concomitant]
  22. PROZAC [Concomitant]
  23. ZYPREXA [Suspect]
     Dosage: 2.5 MG, UNKNOWN
  24. LITHIUM CARBONATE [Concomitant]
  25. PAXIL [Concomitant]
  26. DESIPRAMIDE HCL [Concomitant]
  27. VIOXX [Concomitant]

REACTIONS (18)
  - MYOCARDIAL INFARCTION [None]
  - DIABETIC NEUROPATHY [None]
  - DIABETES MELLITUS [None]
  - CATARACT [None]
  - DYSPNOEA [None]
  - HAEMOPTYSIS [None]
  - DIABETIC NEPHROPATHY [None]
  - ANGINA UNSTABLE [None]
  - SINUS BRADYCARDIA [None]
  - ISCHAEMIA [None]
  - CARDIAC HYPERTROPHY [None]
  - DYSLIPIDAEMIA [None]
  - WEIGHT INCREASED [None]
  - ARTERIOSCLEROSIS CORONARY ARTERY [None]
  - CARDIAC FAILURE [None]
  - MYOCARDITIS [None]
  - RECTAL HAEMORRHAGE [None]
  - HYPERTENSION [None]
